FAERS Safety Report 9735895 (Version 2)
Quarter: 2013Q4

REPORT INFORMATION
  Report Type: Spontaneous
  Country: US (occurrence: US)
  Receive Date: 20131206
  Receipt Date: 20131206
  Transmission Date: 20140711
  Serious: No
  Sender: FDA-Public Use
  Company Number: US-GILEAD-2009-0023712

PATIENT
  Sex: Female
  Weight: 57.15 kg

DRUGS (12)
  1. LETAIRIS [Suspect]
     Indication: PULMONARY ARTERIAL HYPERTENSION
     Route: 048
     Dates: start: 20090315
  2. METHOTREXATE [Concomitant]
  3. HYDROXYCHLOROQUINE [Concomitant]
  4. SYNTHROID [Concomitant]
  5. PREDNISONE [Concomitant]
  6. LEXAPRO [Concomitant]
  7. PERCOCET [Concomitant]
  8. CLONAZEPAM [Concomitant]
  9. METHADONE [Concomitant]
  10. RANITIDINE [Concomitant]
  11. FOLIC ACID [Concomitant]
  12. SENNA [Concomitant]

REACTIONS (9)
  - Amnesia [Unknown]
  - Vision blurred [Unknown]
  - Dysarthria [Unknown]
  - Headache [Unknown]
  - Flushing [Unknown]
  - Palpitations [Unknown]
  - Nasal congestion [Unknown]
  - Abdominal pain [Unknown]
  - Constipation [Unknown]
